FAERS Safety Report 20289457 (Version 4)
Quarter: 2022Q2

REPORT INFORMATION
  Report Type: Spontaneous
  Country: JP (occurrence: JP)
  Receive Date: 20220104
  Receipt Date: 20220429
  Transmission Date: 20220721
  Serious: Yes (Other)
  Sender: FDA-Public Use
  Company Number: JP-TAKEDA-2021TJP138941

PATIENT
  Age: 71 Year
  Sex: Female
  Weight: 57 kg

DRUGS (6)
  1. ZEJULA [Suspect]
     Active Substance: NIRAPARIB
     Indication: Ovarian cancer
     Dosage: 200 MILLIGRAM, QD
     Route: 048
     Dates: start: 20211105, end: 20211119
  2. ZEJULA [Suspect]
     Active Substance: NIRAPARIB
     Dosage: 100 MILLIGRAM, QD
     Route: 048
     Dates: start: 20211203, end: 20220401
  3. NAUZELIN [Concomitant]
     Active Substance: DOMPERIDONE
     Indication: Prophylaxis of nausea and vomiting
     Dosage: 5 MILLIGRAM
     Route: 048
     Dates: start: 20211105
  4. SODIUM FERROUS CITRATE [Concomitant]
     Active Substance: SODIUM FERROUS CITRATE
     Indication: Anaemia
     Dosage: 100 MILLIGRAM, BID
     Route: 048
     Dates: start: 20211105
  5. AMLODIPINE BESYLATE [Concomitant]
     Active Substance: AMLODIPINE BESYLATE
     Indication: Hypertension
     Dosage: 5 MILLIGRAM, QD
     Route: 048
     Dates: start: 20201113
  6. INSULIN GLARGINE [Concomitant]
     Active Substance: INSULIN GLARGINE
     Indication: Diabetes mellitus
     Dosage: UNK
     Route: 058
     Dates: start: 202104

REACTIONS (3)
  - Renal impairment [Recovering/Resolving]
  - Renal impairment [Not Recovered/Not Resolved]
  - Condition aggravated [Not Recovered/Not Resolved]

NARRATIVE: CASE EVENT DATE: 20211112
